FAERS Safety Report 18286070 (Version 2)
Quarter: 2020Q4

REPORT INFORMATION
  Report Type: Spontaneous
  Country: US (occurrence: US)
  Receive Date: 20200919
  Receipt Date: 20201210
  Transmission Date: 20210113
  Serious: Yes (Other)
  Sender: FDA-Public Use
  Company Number: US-SA-2020SA252835

PATIENT

DRUGS (1)
  1. ZANTAC [Suspect]
     Active Substance: RANITIDINE HYDROCHLORIDE
     Dosage: UNK
     Dates: start: 199910, end: 202006

REACTIONS (6)
  - Renal cancer [Unknown]
  - Pain [Unknown]
  - Anxiety [Unknown]
  - Bladder cancer [Unknown]
  - Anhedonia [Unknown]
  - Gastric cancer [Unknown]

NARRATIVE: CASE EVENT DATE: 20120401
